FAERS Safety Report 8287293-8 (Version None)
Quarter: 2012Q2

REPORT INFORMATION
  Report Type: 
  Country: None (occurrence: None)
  Receive Date: 20120416
  Receipt Date: 20120416
  Transmission Date: 20120825
  Serious: Yes (Other)
  Sender: FDA-Public Use
  Company Number: None

PATIENT
  Age: 43 Year
  Sex: Female
  Weight: 87.996 kg

DRUGS (1)
  1. CYMBALTA [Suspect]
     Indication: HEADACHE
     Dosage: 60.0 MG
     Route: 048

REACTIONS (16)
  - DIZZINESS [None]
  - MOOD SWINGS [None]
  - ANGER [None]
  - CRYING [None]
  - AGGRESSION [None]
  - WITHDRAWAL SYNDROME [None]
  - DIARRHOEA [None]
  - DEPRESSION [None]
  - MOTOR DYSFUNCTION [None]
  - PARAESTHESIA [None]
  - VOMITING [None]
  - FATIGUE [None]
  - IMPAIRED WORK ABILITY [None]
  - NAUSEA [None]
  - FEELING OF DESPAIR [None]
  - SLEEP DISORDER [None]
